FAERS Safety Report 23984743 (Version 1)
Quarter: 2024Q2

REPORT INFORMATION
  Report Type: Spontaneous
  Country: FR (occurrence: FR)
  Receive Date: 20240618
  Receipt Date: 20240618
  Transmission Date: 20240716
  Serious: Yes (Other)
  Sender: FDA-Public Use
  Company Number: None

PATIENT
  Age: 22 Year
  Sex: Female
  Weight: 72 kg

DRUGS (1)
  1. VENLAFAXINE [Suspect]
     Active Substance: VENLAFAXINE HYDROCHLORIDE
     Indication: Intentional overdose
     Dosage: TIME INTERVAL: TOTAL: VENLAFAXINE TEVA LP
     Route: 048
     Dates: start: 20240418, end: 20240418

REACTIONS (5)
  - Asthenia [Recovered/Resolved]
  - Chills [Recovered/Resolved]
  - Hypertonia [Recovered/Resolved]
  - Poisoning deliberate [Recovered/Resolved]
  - Hot flush [Recovered/Resolved]

NARRATIVE: CASE EVENT DATE: 20240418
